FAERS Safety Report 12697521 (Version 1)
Quarter: 2016Q3

REPORT INFORMATION
  Report Type: Report from Study
  Country: US (occurrence: US)
  Receive Date: 20160830
  Receipt Date: 20160830
  Transmission Date: 20161109
  Serious: No
  Sender: FDA-Public Use
  Company Number: US-AMGEN-USASL2016110283

PATIENT
  Age: 59 Year
  Sex: Female

DRUGS (1)
  1. ENBREL [Suspect]
     Active Substance: ETANERCEPT
     Indication: PRODUCT USED FOR UNKNOWN INDICATION
     Dosage: UNK
     Route: 065

REACTIONS (7)
  - Mobility decreased [Not Recovered/Not Resolved]
  - Injection site pain [Unknown]
  - Joint stiffness [Not Recovered/Not Resolved]
  - Injection site erythema [Unknown]
  - Injection site bruising [Unknown]
  - Therapeutic response decreased [Unknown]
  - Musculoskeletal stiffness [Not Recovered/Not Resolved]
